FAERS Safety Report 9613318 (Version 2)
Quarter: 2013Q4

REPORT INFORMATION
  Report Type: Report from Study
  Country: US (occurrence: US)
  Receive Date: 20131010
  Receipt Date: 20131010
  Transmission Date: 20140711
  Serious: Yes (Hospitalization, Other)
  Sender: FDA-Public Use
  Company Number: US-PFIZER INC-2013286527

PATIENT
  Sex: 0

DRUGS (2)
  1. IBUPROFEN [Suspect]
  2. ACETAMINOPHEN [Suspect]

REACTIONS (2)
  - Extra dose administered [Unknown]
  - Renal failure acute [Unknown]
